FAERS Safety Report 13164642 (Version 2)
Quarter: 2017Q1

REPORT INFORMATION
  Report Type: Spontaneous
  Country: DE (occurrence: DE)
  Receive Date: 20170130
  Receipt Date: 20170130
  Transmission Date: 20170428
  Serious: Yes (Other)
  Sender: FDA-Public Use
  Company Number: GXKR2017DE000843

PATIENT

DRUGS (8)
  1. FOLIC ACID. [Concomitant]
     Active Substance: FOLIC ACID
     Indication: PROPHYLAXIS OF NEURAL TUBE DEFECT
     Dosage: 0.8 [MG/D ]
     Route: 048
     Dates: start: 20151025, end: 20160703
  2. CICLOSPORIN [Suspect]
     Active Substance: CYCLOSPORINE
     Indication: COLITIS ULCERATIVE
     Dosage: 125 MG, QD
     Route: 048
  3. METRONIDAZOL [Concomitant]
     Active Substance: METRONIDAZOLE
     Indication: CLOSTRIDIAL INFECTION
     Route: 042
     Dates: start: 20160130, end: 20160205
  4. PREDNISOLON [Suspect]
     Active Substance: PREDNISOLONE
     Indication: COLITIS ULCERATIVE
     Dosage: 15 MG, QD
     Route: 048
     Dates: start: 20151025, end: 20160703
  5. L-THYROXINE [Concomitant]
     Active Substance: LEVOTHYROXINE
     Indication: HYPOTHYROIDISM
     Dosage: 50 UG, QD
     Route: 048
     Dates: start: 20151025, end: 20160703
  6. VANCOMYCIN [Concomitant]
     Active Substance: VANCOMYCIN
     Indication: CLOSTRIDIAL INFECTION
     Route: 042
     Dates: start: 20160130, end: 20160208
  7. ARIXTRA [Concomitant]
     Active Substance: FONDAPARINUX SODIUM
     Indication: FACTOR XII DEFICIENCY
     Dosage: 2.5 [MG/D ]
     Route: 058
  8. CLEXANE [Concomitant]
     Active Substance: ENOXAPARIN SODIUM
     Indication: FACTOR XII DEFICIENCY
     Dosage: 40 [MG/D ]
     Route: 058

REACTIONS (1)
  - Pre-eclampsia [Recovered/Resolved]
